FAERS Safety Report 8311409-8 (Version None)
Quarter: 2012Q2

REPORT INFORMATION
  Report Type: 
  Country: None (occurrence: None)
  Receive Date: 20120425
  Receipt Date: 20120117
  Transmission Date: 20120825
  Serious: No
  Sender: FDA-Public Use
  Company Number: US-MYLANLABS-2012S1001715

PATIENT

DRUGS (1)
  1. DUONEB [Suspect]

REACTIONS (1)
  - TREMOR [None]
